FAERS Safety Report 10242408 (Version 3)
Quarter: 2014Q3

REPORT INFORMATION
  Report Type: Spontaneous
  Country: GB (occurrence: GB)
  Receive Date: 20140617
  Receipt Date: 20140814
  Transmission Date: 20150326
  Serious: Yes (Other)
  Sender: FDA-Public Use
  Company Number: GB-PFIZER INC-2014161091

PATIENT
  Age: 73 Year
  Sex: Male

DRUGS (7)
  1. BISOPROLOL FUMARATE. [Suspect]
     Active Substance: BISOPROLOL FUMARATE
     Dosage: 2.5 MG, UNK
  2. AMIAS [Suspect]
     Active Substance: CANDESARTAN CILEXETIL
     Dosage: 16 MG, UNK
  3. ATORVASTATIN [Suspect]
     Active Substance: ATORVASTATIN
     Dosage: 40 MG, 1X/DAY
     Dates: start: 2012
  4. BISOPROLOL FUMARATE. [Suspect]
     Active Substance: BISOPROLOL FUMARATE
     Dosage: 1.25 MG, UNK
  5. ATORVASTATIN [Suspect]
     Active Substance: ATORVASTATIN
     Dosage: 80 MG, 1X/DAY
  6. ASPIRIN. [Suspect]
     Active Substance: ASPIRIN
     Dosage: 75 MG, 1X/DAY (NON-DISPERSIBLE)
  7. ALLOPURINOL. [Suspect]
     Active Substance: ALLOPURINOL
     Dosage: 200 MG, UNK

REACTIONS (9)
  - Angiopathy [Not Recovered/Not Resolved]
  - Blood cholesterol abnormal [Unknown]
  - Dyspnoea [Recovered/Resolved]
  - Chest pain [Unknown]
  - Malaise [Unknown]
  - Tinea pedis [Not Recovered/Not Resolved]
  - Loss of consciousness [Unknown]
  - Coronary artery occlusion [Not Recovered/Not Resolved]
  - High density lipoprotein decreased [Unknown]

NARRATIVE: CASE EVENT DATE: 2013
